FAERS Safety Report 13088867 (Version 1)
Quarter: 2017Q1

REPORT INFORMATION
  Report Type: Spontaneous
  Country: US (occurrence: US)
  Receive Date: 20170105
  Receipt Date: 20170105
  Transmission Date: 20170428
  Serious: Yes (Hospitalization, Other)
  Sender: FDA-Public Use
  Company Number: US-MYLANLABS-2016M1058741

PATIENT

DRUGS (4)
  1. LIDOCAINE. [Suspect]
     Active Substance: LIDOCAINE
     Indication: LOCAL ANAESTHESIA
     Route: 058
  2. BETAMETHASONE. [Suspect]
     Active Substance: BETAMETHASONE
     Indication: BACK PAIN
     Dosage: 12 MG
     Route: 008
  3. LIDOCAINE. [Suspect]
     Active Substance: LIDOCAINE
     Dosage: 0.5%, 2ML
     Route: 008
  4. METHYLPREDNISOLONE. [Suspect]
     Active Substance: METHYLPREDNISOLONE
     Indication: BACK PAIN
     Dosage: 80 MG
     Route: 008

REACTIONS (2)
  - Pneumocephalus [Recovered/Resolved]
  - Meningitis chemical [Recovered/Resolved]
